FAERS Safety Report 5740106-8 (Version None)
Quarter: 2008Q2

REPORT INFORMATION
  Report Type: 
  Country: None (occurrence: None)
  Receive Date: 20080513
  Receipt Date: 20080428
  Transmission Date: 20081010
  Serious: Yes (Other)
  Sender: FDA-Public Use
  Company Number: 2008S1007318

PATIENT
  Age: 41 Year
  Sex: Male

DRUGS (4)
  1. PAROXETINE HCL [Suspect]
     Indication: DEPRESSION
     Dates: start: 19970213, end: 19970901
  2. PAROXETINE HYDROCHLORIDE [Suspect]
     Indication: DRUG USE FOR UNKNOWN INDICATION
     Dates: start: 20021118, end: 20050101
  3. SUMATRIPTAN SUCCINATE [Concomitant]
  4. ZOPICLONE [Concomitant]

REACTIONS (19)
  - AGGRESSION [None]
  - DIARRHOEA [None]
  - DISTURBANCE IN ATTENTION [None]
  - DIZZINESS [None]
  - DRUG WITHDRAWAL SYNDROME [None]
  - ELECTRIC SHOCK [None]
  - FATIGUE [None]
  - FEELING ABNORMAL [None]
  - HYPERHIDROSIS [None]
  - INFLUENZA LIKE ILLNESS [None]
  - LETHARGY [None]
  - MEMORY IMPAIRMENT [None]
  - MIGRAINE [None]
  - MOOD SWINGS [None]
  - MYALGIA [None]
  - NAUSEA [None]
  - NIGHTMARE [None]
  - SOMNOLENCE [None]
  - VOMITING [None]
